FAERS Safety Report 4993950-9 (Version None)
Quarter: 2006Q2

REPORT INFORMATION
  Report Type: 
  Country: None (occurrence: None)
  Receive Date: 20060505
  Receipt Date: 20060503
  Transmission Date: 20061013
  Serious: Yes (Other)
  Sender: FDA-Public Use
  Company Number: US-GLAXOSMITHKLINE-A0604243A

PATIENT
  Sex: Female

DRUGS (4)
  1. ADVAIR DISKUS 100/50 [Suspect]
     Indication: ASTHMA
     Dosage: 1PUFF TWICE PER DAY
     Route: 055
     Dates: start: 20010101
  2. PERCOCET [Suspect]
     Indication: PAIN
     Dates: start: 20060401
  3. ALBUTEROL [Concomitant]
  4. LEVAQUIN [Concomitant]

REACTIONS (6)
  - ASTHENIA [None]
  - HAEMATEMESIS [None]
  - HAEMOPTYSIS [None]
  - NAUSEA [None]
  - SINUS DISORDER [None]
  - VOMITING [None]
